FAERS Safety Report 20638513 (Version 2)
Quarter: 2022Q2

REPORT INFORMATION
  Report Type: Spontaneous
  Country: US (occurrence: US)
  Receive Date: 20220325
  Receipt Date: 20220414
  Transmission Date: 20220721
  Serious: Yes (Other)
  Sender: FDA-Public Use
  Company Number: US-BAYER-2022A038741

PATIENT
  Age: 21 Year
  Sex: Male

DRUGS (2)
  1. KOGENATE FS [Suspect]
     Active Substance: ANTIHEMOPHILIC FACTOR, HUMAN RECOMBINANT
     Dosage: 3000 U
  2. KOGENATE FS [Suspect]
     Active Substance: ANTIHEMOPHILIC FACTOR, HUMAN RECOMBINANT
     Dosage: TREATMENT FOR CUT ABOVE THE RIGHT EYE
     Dates: start: 20220313, end: 20220313

REACTIONS (3)
  - Wound haemorrhage [Recovered/Resolved]
  - Skin laceration [None]
  - Fall [None]

NARRATIVE: CASE EVENT DATE: 20220313
